FAERS Safety Report 8302477 (Version 12)
Quarter: 2013Q1

REPORT INFORMATION
  Report Type: Report from Study
  Country: FR (occurrence: FR)
  Receive Date: 20111220
  Receipt Date: 20130214
  Transmission Date: 20140127
  Serious: Yes (Other)
  Sender: FDA-Public Use
  Company Number: FR-ROCHE-1020891

PATIENT
  Age: 50 Year
  Sex: Male
  Weight: 71 kg

DRUGS (26)
  1. RO 5190591 [Suspect]
     Indication: CHRONIC HEPATITIS C
     Dosage: RECENT DOSE OF DANOPREVIR PRIOR TO AE ONSET 08 DEC 2011, LAST DOSE 100MG
     Route: 048
     Dates: start: 20110906
  2. RO 5024048 [Suspect]
     Indication: CHRONIC HEPATITIS C
     Dosage: RECENT DOSE PRIOR TO AE ONSET 08 DEC 2011, LAST DOSE 1000MG
     Route: 048
  3. PEG-INTERFERON ALFA 2A [Suspect]
     Indication: CHRONIC HEPATITIS C
     Dosage: RECENT DOSE OF PEGASYS PRIOR TO AE 06 DEC 2011, DOSE 180UG
     Route: 058
  4. RIBAVIRIN [Suspect]
     Indication: CHRONIC HEPATITIS C
     Dosage: RECENT DOSE PRIOR TO AE ONSET 08 DEC 2011, LAST DOSE 400 MG
     Route: 048
  5. RITONAVIR [Suspect]
     Indication: CHRONIC HEPATITIS C
     Dosage: RECENT DOSE PRIOR TO AE ONSET 08 DEC 2011, LAST DOSE 100MG
     Route: 048
     Dates: start: 20110906
  6. TRIVASTAL [Concomitant]
     Indication: PARAESTHESIA
     Route: 065
     Dates: start: 2001
  7. NOCTAMIDE [Concomitant]
     Indication: INSOMNIA
     Route: 065
     Dates: start: 20111004, end: 20120328
  8. DEXERYL (GLYCEROL/WHITE SOFT PARAFFIN/LIQUID PARAFFIN) [Concomitant]
     Indication: ERYTHEMA
     Route: 065
     Dates: start: 20111004, end: 20111220
  9. XYZALL [Concomitant]
     Indication: PRURITUS
     Route: 065
     Dates: start: 20111004, end: 20111108
  10. PRIMPERAN (FRANCE) [Concomitant]
     Indication: NAUSEA
     Route: 065
     Dates: start: 20111004, end: 20120106
  11. IBUPROFEN [Concomitant]
     Indication: FACIAL PAIN
     Route: 065
     Dates: start: 20111018, end: 20111206
  12. ARTHRODONT [Concomitant]
     Indication: TONGUE DISORDER
     Route: 065
     Dates: start: 20111018, end: 20111206
  13. PARACETAMOL [Concomitant]
     Indication: HEADACHE
     Route: 065
     Dates: start: 20110906, end: 20111017
  14. SODIUM BICARBONATE [Concomitant]
     Indication: TONGUE DISORDER
     Route: 065
     Dates: start: 20111018, end: 20111206
  15. NEORECORMON [Concomitant]
     Indication: ANAEMIA
     Route: 065
     Dates: start: 20111108, end: 20120215
  16. KETOCONAZOLE [Concomitant]
     Indication: PRURITUS
     Route: 065
     Dates: start: 20111117, end: 20111220
  17. DEXERYL (FRANCE) [Concomitant]
     Indication: PRURITUS
     Route: 065
     Dates: start: 20111117, end: 20111220
  18. NERISONE [Concomitant]
     Indication: PRURITUS
     Route: 065
     Dates: start: 20111117, end: 20111215
  19. PYOSTACINE [Concomitant]
     Indication: OEDEMA PERIPHERAL
     Route: 065
     Dates: start: 20111115, end: 20111125
  20. SOLIAN [Concomitant]
     Indication: AFFECTIVE DISORDER
     Route: 065
     Dates: start: 20111228, end: 20120110
  21. SOLIAN [Concomitant]
     Indication: IRRITABILITY
     Route: 065
     Dates: start: 20120509, end: 20120807
  22. SMECTA (UNK INGREDIENTS) [Concomitant]
     Indication: DIARRHOEA
     Route: 065
     Dates: start: 20111215, end: 20111228
  23. PAROXETINE [Concomitant]
     Indication: AFFECTIVE DISORDER
     Route: 065
     Dates: start: 20120110, end: 20120328
  24. PRIMPERAN (FRANCE) [Concomitant]
     Indication: NAUSEA
     Route: 065
     Dates: start: 20120113, end: 20120221
  25. RED BLOOD CELLS [Concomitant]
     Indication: ANAEMIA
     Route: 065
     Dates: start: 20111206, end: 20111206
  26. SERESTA [Concomitant]
     Indication: IRRITABILITY
     Route: 065
     Dates: start: 20100506

REACTIONS (1)
  - Porphyria non-acute [Not Recovered/Not Resolved]
